FAERS Safety Report 24744596 (Version 1)
Quarter: 2024Q4

REPORT INFORMATION
  Report Type: Report from Study
  Country: US (occurrence: US)
  Receive Date: 20241217
  Receipt Date: 20241217
  Transmission Date: 20250115
  Serious: Yes (Death)
  Sender: BAYER HEALTHCARE PHARMACEUTICALS INC.
  Company Number: US-BAYER-2024A176487

PATIENT
  Age: 74 Year
  Sex: Female

DRUGS (3)
  1. ADEMPAS [Suspect]
     Active Substance: RIOCIGUAT
     Indication: Pulmonary arterial hypertension
     Dosage: 0.5 MG, TID
     Route: 048
     Dates: start: 202010
  2. AMBRISENTAN [Concomitant]
     Active Substance: AMBRISENTAN
  3. ORENITRAM [Concomitant]
     Active Substance: TREPROSTINIL
     Dosage: 1.25MG IN AM AND PM (TAKING 1-1MG AND 1-0.25MG TABLETS) AND 1MG AT BEDTIME (TAKING 1-1MG TABLET)

REACTIONS (1)
  - Death [Fatal]

NARRATIVE: CASE EVENT DATE: 20241211
